FAERS Safety Report 5767182-0 (Version None)
Quarter: 2008Q2

REPORT INFORMATION
  Report Type: 
  Country: None (occurrence: None)
  Receive Date: 20080611
  Receipt Date: 20080606
  Transmission Date: 20081010
  Serious: No
  Sender: FDA-Public Use
  Company Number: APP200800482

PATIENT
  Age: 48 Year
  Sex: Male
  Weight: 89.8122 kg

DRUGS (3)
  1. HEPARIN SODIUM INJECTION [Suspect]
     Indication: HAEMODIALYSIS
     Dosage: 7000 USP UNITS, AT BEGINNING OF DIALYSIS : 1000 USP UNITS, 1 HR AFTER STARTING DIALYSIS
  2. RENEGEL (SEVELAMER) [Concomitant]
  3. NORVASC [Concomitant]

REACTIONS (4)
  - HYPERHIDROSIS [None]
  - HYPOTENSION [None]
  - NAUSEA [None]
  - RENAL TRANSPLANT [None]
